FAERS Safety Report 4944347-9 (Version None)
Quarter: 2006Q1

REPORT INFORMATION
  Report Type: 
  Country: None (occurrence: None)
  Receive Date: 20060104
  Receipt Date: 20051031
  Transmission Date: 20060701
  Serious: Yes (Hospitalization)
  Sender: FDA-Public Use
  Company Number: SU-2005-004211

PATIENT
  Sex: Female

DRUGS (1)
  1. BENICAR HCT [Suspect]
     Dosage: 40.25 MG UNK PO
     Route: 048

REACTIONS (3)
  - ANGIONEUROTIC OEDEMA [None]
  - PHARYNGEAL OEDEMA [None]
  - SWOLLEN TONGUE [None]
